FAERS Safety Report 8793385 (Version 2)
Quarter: 2012Q4

REPORT INFORMATION
  Report Type: 
  Country: DE (occurrence: DE)
  Receive Date: 20120918
  Receipt Date: 20120928
  Transmission Date: 20130627
  Serious: Yes (Hospitalization, Other)
  Sender: FDA-Public Use
  Company Number: DE-JNJFOC-20120905497

PATIENT
  Age: 58 Year
  Sex: Male

DRUGS (11)
  1. REMICADE [Suspect]
     Indication: RHEUMATOID ARTHRITIS
     Route: 042
     Dates: start: 20120523
  2. REMICADE [Suspect]
     Indication: RHEUMATOID ARTHRITIS
     Route: 042
     Dates: start: 200503
  3. REMICADE [Suspect]
     Indication: RHEUMATOID ARTHRITIS
     Route: 042
     Dates: start: 200705
  4. REMICADE [Suspect]
     Indication: PSORIATIC ARTHROPATHY
     Route: 042
     Dates: start: 20120523
  5. REMICADE [Suspect]
     Indication: PSORIATIC ARTHROPATHY
     Route: 042
     Dates: start: 200503
  6. REMICADE [Suspect]
     Indication: PSORIATIC ARTHROPATHY
     Route: 042
     Dates: start: 200705
  7. METHOTREXATE [Concomitant]
     Indication: RHEUMATOID ARTHRITIS
     Route: 065
     Dates: start: 20120523, end: 20120523
  8. METHOTREXATE [Concomitant]
     Indication: RHEUMATOID ARTHRITIS
     Route: 065
     Dates: start: 20050305
  9. RAMIPRIL [Concomitant]
     Indication: HYPERTENSION
     Route: 065
  10. CARVEDILOL [Concomitant]
     Indication: HYPERTENSION
     Route: 065
  11. AMLODIPINE [Concomitant]
     Indication: HYPERTENSION
     Route: 065

REACTIONS (4)
  - Encephalitis [Not Recovered/Not Resolved]
  - Radiculopathy [Unknown]
  - Brachial plexopathy [Not Recovered/Not Resolved]
  - Psoriatic arthropathy [Unknown]
